FAERS Safety Report 24613262 (Version 1)
Quarter: 2024Q4

REPORT INFORMATION
  Report Type: Spontaneous
  Country: US (occurrence: None)
  Receive Date: 20241112
  Receipt Date: 20241112
  Transmission Date: 20250114
  Serious: No
  Sender: Public
  Company Number: None

PATIENT
  Age: 80 Year
  Sex: Female

DRUGS (1)
  1. DYSPORT [Suspect]
     Active Substance: ABOBOTULINUMTOXINA

REACTIONS (8)
  - Botulism [None]
  - Headache [None]
  - Eyelid ptosis [None]
  - Vision blurred [None]
  - Fatigue [None]
  - Quality of life decreased [None]
  - Drug ineffective [None]
  - Product advertising issue [None]

NARRATIVE: CASE EVENT DATE: 20240806
